FAERS Safety Report 7490820-1 (Version None)
Quarter: 2011Q2

REPORT INFORMATION
  Report Type: 
  Country: None (occurrence: None)
  Receive Date: 20110519
  Receipt Date: 20110506
  Transmission Date: 20111010
  Serious: Yes (Hospitalization, Other)
  Sender: FDA-Public Use
  Company Number: US-ELI_LILLY_AND_COMPANY-US200911005427

PATIENT
  Sex: Female

DRUGS (8)
  1. INSULIN [Concomitant]
  2. FORTEO [Suspect]
     Dosage: UNK, UNKNOWN
     Route: 058
     Dates: start: 20090601, end: 20090907
  3. SYNTHROID [Concomitant]
     Dosage: 100 UG, DAILY (1/D)
  4. ZOCOR [Concomitant]
     Dosage: 20 MG, DAILY (1/D)
  5. LASIX [Concomitant]
     Dosage: 20 MG, DAILY (1/D)
  6. ENTERIC ASPIRIN [Concomitant]
     Dosage: 325 MG, DAILY (1/D)
     Route: 048
  7. DIOVAN [Concomitant]
     Dosage: 80 MG, DAILY (1/D)
  8. INSULIN [Concomitant]
     Dates: start: 20090901, end: 20090901

REACTIONS (5)
  - DEHYDRATION [None]
  - ULNA FRACTURE [None]
  - CARDIAC PACEMAKER INSERTION [None]
  - FALL [None]
  - UNRESPONSIVE TO STIMULI [None]
